FAERS Safety Report 24128005 (Version 1)
Quarter: 2024Q3

REPORT INFORMATION
  Report Type: Spontaneous
  Country: US (occurrence: US)
  Receive Date: 20240723
  Receipt Date: 20240723
  Transmission Date: 20241016
  Serious: No
  Sender: JOHNSON AND JOHNSON
  Company Number: US-JNJFOC-20240749372

PATIENT
  Age: 40 Year
  Sex: Male

DRUGS (3)
  1. INVEGA SUSTENNA [Suspect]
     Active Substance: PALIPERIDONE PALMITATE
     Indication: Hallucination, auditory
     Route: 030
  2. INVEGA SUSTENNA [Suspect]
     Active Substance: PALIPERIDONE PALMITATE
     Indication: Paranoia
  3. INVEGA SUSTENNA [Suspect]
     Active Substance: PALIPERIDONE PALMITATE

REACTIONS (6)
  - Asthenia [Not Recovered/Not Resolved]
  - Illness [Not Recovered/Not Resolved]
  - Impaired work ability [Not Recovered/Not Resolved]
  - Dizziness [Not Recovered/Not Resolved]
  - Libido disorder [Not Recovered/Not Resolved]
  - Off label use [Unknown]

NARRATIVE: CASE EVENT DATE: 20240718
